FAERS Safety Report 16911217 (Version 1)
Quarter: 2019Q4

REPORT INFORMATION
  Report Type: Spontaneous
  Country: US (occurrence: US)
  Receive Date: 20190821
  Receipt Date: 20190821
  Transmission Date: 20200122
  Serious: Yes (Hospitalization)
  Sender: FDA-Public Use
  Company Number: None

PATIENT
  Age: 75 Year
  Sex: Male

DRUGS (1)
  1. PROPRANOLOL [Suspect]
     Active Substance: PROPRANOLOL HYDROCHLORIDE
     Indication: TREMOR
     Route: 048
     Dates: start: 19991201, end: 20190221

REACTIONS (4)
  - Sinus arrest [None]
  - Angina pectoris [None]
  - Bradycardia [None]
  - Syncope [None]

NARRATIVE: CASE EVENT DATE: 20190228
